FAERS Safety Report 18262808 (Version 1)
Quarter: 2020Q3

REPORT INFORMATION
  Report Type: Spontaneous
  Country: US (occurrence: US)
  Receive Date: 20200914
  Receipt Date: 20200914
  Transmission Date: 20201103
  Serious: No
  Sender: FDA-Public Use
  Company Number: US-TEVA-2020-US-1828026

PATIENT
  Age: 68 Year
  Sex: Female
  Weight: 99.79 kg

DRUGS (2)
  1. IRBESARTAN AND HYDROCHLOROTHIAZIDE TEVA [Suspect]
     Active Substance: HYDROCHLOROTHIAZIDE\IRBESARTAN
     Dosage: IRBESARTAN 300MG, HYDROCHLOROTHIAZIDE 25MG ONE TABLET DAILY BY MOUTH
     Route: 048
  2. IRBESARTAN AND HYDROCHLOROTHIAZIDE TEVA [Suspect]
     Active Substance: HYDROCHLOROTHIAZIDE\IRBESARTAN
     Indication: HYPERTENSION
     Dosage: IRBESARTAN 300MG, HYDROCHLOROTHIAZIDE 12.5MG ONE TABLET DAILY BY MOUTH
     Route: 048

REACTIONS (3)
  - Blood potassium decreased [Unknown]
  - Peripheral swelling [Unknown]
  - Blood pressure increased [Unknown]
